FAERS Safety Report 18478763 (Version 1)
Quarter: 2020Q4

REPORT INFORMATION
  Report Type: Spontaneous
  Country: US (occurrence: US)
  Receive Date: 20201109
  Receipt Date: 20201109
  Transmission Date: 20210114
  Serious: Yes (Life-Threatening, Hospitalization, Other)
  Sender: FDA-Public Use
  Company Number: US-CIPLA LTD.-2020US07871

PATIENT

DRUGS (1)
  1. TESTOSTERONE. [Suspect]
     Active Substance: TESTOSTERONE
     Indication: FATIGUE
     Dosage: UNK, PER WEEK
     Route: 065

REACTIONS (7)
  - Ventricular hypokinesia [Unknown]
  - Deep vein thrombosis [Unknown]
  - Sinus tachycardia [Unknown]
  - Right ventricular enlargement [Unknown]
  - Diastolic dysfunction [Unknown]
  - Pulmonary embolism [Unknown]
  - Acute myocardial infarction [Unknown]
